FAERS Safety Report 5416846-7 (Version None)
Quarter: 2007Q3

REPORT INFORMATION
  Report Type: 
  Country: None (occurrence: None)
  Receive Date: 20070816
  Receipt Date: 20070810
  Transmission Date: 20080115
  Serious: Yes (Death, Hospitalization)
  Sender: FDA-Public Use
  Company Number: US-BAXTER-2007BH006597

PATIENT
  Age: 77 Year
  Sex: Male
  Weight: 80 kg

DRUGS (25)
  1. DIANEAL [Suspect]
     Indication: RENAL FAILURE CHRONIC
     Route: 033
     Dates: start: 20040901, end: 20070729
  2. DIANEAL [Suspect]
     Indication: PERITONEAL DIALYSIS
     Route: 033
     Dates: start: 20040901, end: 20070729
  3. DIANEAL [Suspect]
     Route: 033
     Dates: start: 20020930, end: 20031118
  4. DIANEAL [Suspect]
     Route: 033
     Dates: start: 20020930, end: 20031118
  5. EXTRANEAL [Suspect]
     Indication: RENAL FAILURE CHRONIC
     Route: 033
     Dates: start: 20040901, end: 20070701
  6. EXTRANEAL [Suspect]
     Indication: PERITONEAL DIALYSIS
     Route: 033
     Dates: start: 20040901, end: 20070701
  7. EXTRANEAL [Suspect]
     Route: 033
     Dates: start: 20020930, end: 20031118
  8. EXTRANEAL [Suspect]
     Route: 033
     Dates: start: 20020930, end: 20031118
  9. TYLENOL (CAPLET) [Concomitant]
  10. ASPIRIN [Concomitant]
  11. ATORVASTATIN CALCIUM [Concomitant]
  12. CALCITRIOL [Concomitant]
     Route: 048
  13. CALCIUM CARBONATE [Concomitant]
     Route: 048
  14. MULTI-VITAMIN [Concomitant]
  15. ARANESP [Concomitant]
     Dosage: DOSE UNIT:
     Route: 058
  16. ZETIA [Concomitant]
  17. TRICOR [Concomitant]
  18. ADVAIR DISKUS 100/50 [Concomitant]
     Route: 055
  19. FOLIC ACID [Concomitant]
  20. METOPROLOL SUCCINATE [Concomitant]
     Route: 048
  21. MUPIROCIN CALCIUM [Concomitant]
     Route: 061
  22. NORTRIPTYLINE HCL [Concomitant]
  23. OSTEOBIFLEX [Concomitant]
  24. PREDNISONE TAB [Concomitant]
     Route: 048
  25. TAMSULOSIN HCL [Concomitant]
     Route: 048

REACTIONS (1)
  - PERITONITIS BACTERIAL [None]
